FAERS Safety Report 24831958 (Version 1)
Quarter: 2025Q1

REPORT INFORMATION
  Report Type: Spontaneous
  Country: US (occurrence: None)
  Receive Date: 20250109
  Receipt Date: 20250109
  Transmission Date: 20250409
  Serious: Yes (Hospitalization)
  Sender: FDA-CTU
  Company Number: None

PATIENT
  Age: 72 Year
  Sex: Male
  Weight: 95 kg

DRUGS (3)
  1. ULTOMIRIS [Suspect]
     Active Substance: RAVULIZUMAB-CWVZ
     Indication: Myasthenia gravis
     Dosage: OTHER FREQUENCY : EVERY 8 WEEKS;?
     Route: 040
     Dates: start: 20230913
  2. MENINGOCOCCAL VACCINE POLYSACCHARIDE (NOS) [Suspect]
     Active Substance: MENINGOCOCCAL POLYSACCHARIDE VACCINE, GROUPS A, C, Y,W135 COMBINED
  3. MENINGOCOCCAL POLYSACCHARIDE VACCINE, GROUPS A, C, Y, W135 COMBINED NO [Suspect]
     Active Substance: MENINGOCOCCAL POLYSACCHARIDE VACCINE, GROUPS A, C, Y,W135 COMBINED

REACTIONS (1)
  - Arthritis bacterial [None]

NARRATIVE: CASE EVENT DATE: 20250106
